FAERS Safety Report 11254837 (Version 1)
Quarter: 2015Q3

REPORT INFORMATION
  Report Type: Spontaneous
  Country: FR (occurrence: FR)
  Receive Date: 20150709
  Receipt Date: 20150709
  Transmission Date: 20151125
  Serious: Yes (Hospitalization)
  Sender: FDA-Public Use
  Company Number: FR-ASTRAZENECA-2015SE65541

PATIENT
  Age: 6897 Day
  Sex: Female
  Weight: 49 kg

DRUGS (13)
  1. DAUNOXOME [Suspect]
     Active Substance: DAUNORUBICIN CITRATE
     Route: 041
     Dates: start: 20150430, end: 20150521
  2. VINCRISTINE TEVA [Suspect]
     Active Substance: VINCRISTINE
     Route: 042
     Dates: start: 20150430, end: 20150521
  3. KIDROLASE [Suspect]
     Active Substance: ASPARAGINASE
     Route: 041
     Dates: start: 20150507, end: 20150525
  4. ARACYTINE [Concomitant]
     Active Substance: CYTARABINE
     Route: 037
     Dates: start: 20150504, end: 20150518
  5. SOLUPRED [Concomitant]
     Active Substance: PREDNISOLONE
     Route: 048
     Dates: start: 20150521, end: 20150523
  6. METHOTREXATE (METHOTREXATE SODIUM) [Concomitant]
     Active Substance: METHOTREXATE SODIUM
     Route: 037
     Dates: start: 20150504, end: 20150518
  7. SOLUPRED [Concomitant]
     Active Substance: PREDNISOLONE
     Dosage: 50 MG AT MORNING ET 45 MG AT NIGHT
     Route: 048
     Dates: start: 20150430, end: 20150521
  8. SOLUPRED [Concomitant]
     Active Substance: PREDNISOLONE
     Route: 048
     Dates: start: 20150523, end: 20150525
  9. ZOPHREN [Concomitant]
     Active Substance: ONDANSETRON
     Route: 048
  10. INEXIUM [Suspect]
     Active Substance: ESOMEPRAZOLE
     Indication: PROPHYLAXIS OF NAUSEA AND VOMITING
     Route: 048
     Dates: start: 20150430, end: 20150527
  11. HYDROCORTISONE UPJOHN [Concomitant]
     Active Substance: HYDROCORTISONE
     Route: 037
     Dates: start: 20150504, end: 20150518
  12. SOLUPRED [Concomitant]
     Active Substance: PREDNISOLONE
     Route: 048
     Dates: start: 20150525, end: 20150527
  13. DIANE (CYPROTERONE ACETATE\ETHINYL ESTRADIOL) [Concomitant]
     Active Substance: CYPROTERONE ACETATE\ETHINYL ESTRADIOL

REACTIONS (1)
  - Inappropriate antidiuretic hormone secretion [Recovered/Resolved]

NARRATIVE: CASE EVENT DATE: 20150528
